FAERS Safety Report 6394862-9 (Version None)
Quarter: 2009Q4

REPORT INFORMATION
  Report Type: 
  Country: None (occurrence: None)
  Receive Date: 20091009
  Receipt Date: 20090930
  Transmission Date: 20100525
  Serious: Yes (Other)
  Sender: FDA-Public Use
  Company Number: US-JNJFOC-20091000353

PATIENT
  Age: 44 Year
  Sex: Male

DRUGS (3)
  1. REMICADE [Suspect]
     Dosage: 3 INDUCTION DOSES
     Route: 042
  2. REMICADE [Suspect]
     Indication: CROHN'S DISEASE
     Dosage: 3 INDUCTION DOSES(WEEK 0,2,6)
     Route: 042
  3. CORTICOSTEROIDS [Concomitant]
     Indication: PREMEDICATION

REACTIONS (3)
  - CROHN'S DISEASE [None]
  - MYALGIA [None]
  - SPEECH DISORDER [None]
